FAERS Safety Report 4454500-9 (Version None)
Quarter: 2004Q3

REPORT INFORMATION
  Report Type: 
  Country: None (occurrence: None)
  Receive Date: 20040921
  Receipt Date: 20040909
  Transmission Date: 20050211
  Serious: Yes (Hospitalization)
  Sender: FDA-Public Use
  Company Number: JP-JNJFOC-20040806612

PATIENT
  Age: 35 Year
  Sex: Female

DRUGS (6)
  1. OFLOXACIN [Suspect]
     Indication: DRUG USE FOR UNKNOWN INDICATION
     Route: 042
     Dates: start: 20040622, end: 20040624
  2. ROCEPHIN [Concomitant]
     Route: 042
     Dates: start: 20040601, end: 20040617
  3. GENTAMYCIN SULFATE [Concomitant]
     Dates: start: 20040615, end: 20040617
  4. MIXTARD HUMAN 70/30 [Concomitant]
     Route: 050
  5. MIXTARD HUMAN 70/30 [Concomitant]
     Route: 050
  6. MICROVAL [Concomitant]

REACTIONS (14)
  - ACUTE RESPIRATORY FAILURE [None]
  - ALANINE AMINOTRANSFERASE INCREASED [None]
  - ANTIBODY TEST POSITIVE [None]
  - ANTINUCLEAR ANTIBODY POSITIVE [None]
  - ASPARTATE AMINOTRANSFERASE INCREASED [None]
  - AUTOIMMUNE DISORDER [None]
  - BLOOD ALKALINE PHOSPHATASE INCREASED [None]
  - CHOLESTASIS [None]
  - ESCHERICHIA SEPSIS [None]
  - GAMMA-GLUTAMYLTRANSFERASE DECREASED [None]
  - HAEMANGIOMA OF LIVER [None]
  - HEPATIC LESION [None]
  - IATROGENIC INJURY [None]
  - VENTRICULAR HYPERTROPHY [None]
